FAERS Safety Report 7112042-6 (Version None)
Quarter: 2010Q4

REPORT INFORMATION
  Report Type: 
  Country: None (occurrence: None)
  Receive Date: 20101119
  Receipt Date: 20101116
  Transmission Date: 20110411
  Serious: No
  Sender: FDA-Public Use
  Company Number: US-PFIZER INC-2010149616

PATIENT
  Sex: Female
  Weight: 72.562 kg

DRUGS (1)
  1. NICOTROL [Suspect]
     Indication: SMOKING CESSATION THERAPY
     Dosage: UNK
     Route: 045
     Dates: start: 20090101, end: 20100101

REACTIONS (1)
  - NASAL DISCOMFORT [None]
